FAERS Safety Report 9096907 (Version 2)
Quarter: 2013Q1

REPORT INFORMATION
  Report Type: Spontaneous
  Country: DE (occurrence: DE)
  Receive Date: 20130211
  Receipt Date: 20130315
  Transmission Date: 20140127
  Serious: Yes (Life-Threatening, Hospitalization, Other)
  Sender: FDA-Public Use
  Company Number: DE-AMGEN-DEUSP2013008111

PATIENT
  Age: 57 Year
  Sex: Male
  Weight: 78 kg

DRUGS (3)
  1. ENBREL [Suspect]
     Indication: RHEUMATOID ARTHRITIS
     Dosage: 50 MG, WEEKLY
     Dates: start: 201012
  2. MTX                                /00113801/ [Concomitant]
     Dosage: 20 MG, UNK
  3. PREDNISOLON                        /00016201/ [Concomitant]
     Dosage: 7 MG, UNK

REACTIONS (4)
  - Non-Hodgkin^s lymphoma [Not Recovered/Not Resolved]
  - Metastases to lung [Unknown]
  - Metastases to spleen [Unknown]
  - Rheumatoid nodule [Unknown]
